FAERS Safety Report 16325829 (Version 2)
Quarter: 2019Q2

REPORT INFORMATION
  Report Type: Spontaneous
  Country: IN (occurrence: IN)
  Receive Date: 20190517
  Receipt Date: 20190523
  Transmission Date: 20190711
  Serious: Yes (Other)
  Sender: FDA-Public Use
  Company Number: IN-PFIZER INC-2019202027

PATIENT
  Age: 6 Year
  Sex: Male

DRUGS (2)
  1. VINCRISTINE [Suspect]
     Active Substance: VINCRISTINE
     Indication: HEPATOBLASTOMA
     Dosage: UNK, CYCLIC, (TWO CYCLES OF NEOADJUVANT CHEMOTHERAPY)
  2. DOXORUBICIN HCL [Suspect]
     Active Substance: DOXORUBICIN HYDROCHLORIDE
     Indication: HEPATOBLASTOMA
     Dosage: UNK, CYCLIC, (TWO CYCLES OF NEOADJUVANT CHEMOTHERAPY)

REACTIONS (1)
  - Tumour necrosis [Recovered/Resolved]
